FAERS Safety Report 6601371-8 (Version None)
Quarter: 2010Q1

REPORT INFORMATION
  Report Type: 
  Country: None (occurrence: None)
  Receive Date: 20100225
  Receipt Date: 20100223
  Transmission Date: 20100710
  Serious: Yes (Hospitalization, Other)
  Sender: FDA-Public Use
  Company Number: DE-SANOFI-AVENTIS-2010SA010469

PATIENT
  Sex: Male

DRUGS (1)
  1. MULTAQ [Suspect]
     Route: 065
     Dates: start: 20100112

REACTIONS (2)
  - HEPATITIS [None]
  - TRANSAMINASES INCREASED [None]
